FAERS Safety Report 5518092-5 (Version None)
Quarter: 2007Q4

REPORT INFORMATION
  Report Type: 
  Country: None (occurrence: None)
  Receive Date: 20071115
  Receipt Date: 20071106
  Transmission Date: 20080405
  Serious: Yes (Hospitalization)
  Sender: FDA-Public Use
  Company Number: FI-JNJFOC-20071102091

PATIENT
  Sex: Male

DRUGS (3)
  1. REMICADE [Suspect]
     Indication: ANKYLOSING SPONDYLITIS
     Route: 042
  2. PAIN MEDICATION [Concomitant]
  3. IBUPROFEN [Concomitant]

REACTIONS (1)
  - TESTICULAR SEMINOMA (PURE) STAGE II [None]
